FAERS Safety Report 8250075-7 (Version None)
Quarter: 2012Q2

REPORT INFORMATION
  Report Type: 
  Country: None (occurrence: None)
  Receive Date: 20120402
  Receipt Date: 20120329
  Transmission Date: 20120825
  Serious: Yes (Death, Life-Threatening, Hospitalization, Other)
  Sender: FDA-Public Use
  Company Number: AU-B.I. PHARMACEUTICALS,INC./RIDGEFIELD-2012-AU-00418AU

PATIENT
  Sex: Female
  Weight: 59 kg

DRUGS (8)
  1. PRADAXA [Suspect]
     Indication: CEREBROVASCULAR ACCIDENT PROPHYLAXIS
     Dates: start: 20110912
  2. METFORMIN HCL [Concomitant]
     Dosage: 1000 MG
     Dates: start: 20040101
  3. CADUET [Concomitant]
     Dosage: 5 MG
     Dates: start: 20070101
  4. AMIODARONE HCL [Concomitant]
     Dosage: 200 MG
  5. LIPIDIL [Concomitant]
     Dosage: 145 MG
     Dates: start: 20070101
  6. RABEPRAZOLE SODIUM [Concomitant]
     Dosage: 20 MG
     Dates: start: 20070101
  7. IRBESARTAN + HYDROCHLOROTHIAZIDE [Concomitant]
     Dosage: 150 MG
     Dates: start: 20070101
  8. ATENOLOL [Concomitant]
     Dosage: 25 MG

REACTIONS (5)
  - DIARRHOEA [None]
  - CARDIAC FAILURE ACUTE [None]
  - CARDIAC ARREST [None]
  - SEPTIC SHOCK [None]
  - SEPSIS [None]
